FAERS Safety Report 8784446 (Version 4)
Quarter: 2012Q4

REPORT INFORMATION
  Report Type: 
  Country: US (occurrence: US)
  Receive Date: 20120913
  Receipt Date: 20121127
  Transmission Date: 20130627
  Serious: Yes (Other)
  Sender: FDA-Public Use
  Company Number: US-PFIZER INC-2012223990

PATIENT
  Age: 34 Year
  Sex: Female
  Weight: 77.1 kg

DRUGS (1)
  1. DILANTIN [Suspect]
     Indication: SEIZURES
     Dosage: 100 mg, 3x/day

REACTIONS (2)
  - Drug ineffective [Unknown]
  - Anticonvulsant drug level below therapeutic [Not Recovered/Not Resolved]
